FAERS Safety Report 18227015 (Version 3)
Quarter: 2021Q1

REPORT INFORMATION
  Report Type: Spontaneous
  Country: US (occurrence: US)
  Receive Date: 20200903
  Receipt Date: 20210303
  Transmission Date: 20210419
  Serious: Yes (Other)
  Sender: FDA-Public Use
  Company Number: US-PFIZER INC-2020340029

PATIENT

DRUGS (9)
  1. BENADRYL [Concomitant]
     Active Substance: DIPHENHYDRAMINE HYDROCHLORIDE
     Indication: PRODUCT USED FOR UNKNOWN INDICATION
     Dosage: UNK
  2. ADVIL PM [Suspect]
     Active Substance: DIPHENHYDRAMINE CITRATE\IBUPROFEN
     Indication: SLEEP DISORDER
     Dosage: UNK
     Dates: end: 2020
  3. LISINOPRIL. [Interacting]
     Active Substance: LISINOPRIL
     Indication: HYPERTENSION
     Dosage: 15 MG, 1X/DAY
  4. CAPLYTA [Interacting]
     Active Substance: LUMATEPERONE
     Indication: BIPOLAR DISORDER
  5. CAPLYTA [Interacting]
     Active Substance: LUMATEPERONE
     Indication: POST-TRAUMATIC STRESS DISORDER
  6. LISINOPRIL. [Interacting]
     Active Substance: LISINOPRIL
     Dosage: 20 MG, 1X/DAY
  7. CAPLYTA [Interacting]
     Active Substance: LUMATEPERONE
     Indication: SCHIZOPHRENIA
     Dosage: 42 MG, 1X/DAY
     Route: 048
     Dates: start: 20200729
  8. CAPLYTA [Interacting]
     Active Substance: LUMATEPERONE
     Indication: SCHIZOAFFECTIVE DISORDER
     Dosage: 42 MG, 1X/DAY
     Route: 048
     Dates: start: 2020
  9. CAPLYTA [Interacting]
     Active Substance: LUMATEPERONE
     Indication: OBSESSIVE-COMPULSIVE DISORDER

REACTIONS (17)
  - Drug interaction [Unknown]
  - Hypertension [Not Recovered/Not Resolved]
  - Violence-related symptom [Unknown]
  - Suicide attempt [Unknown]
  - Heart rate increased [Recovered/Resolved]
  - Hypoaesthesia oral [Unknown]
  - Sedation [Unknown]
  - Delusion [Unknown]
  - Emotional disorder [Unknown]
  - Screaming [Unknown]
  - Anger [Unknown]
  - Peripheral swelling [Unknown]
  - Diarrhoea [Unknown]
  - Drug interaction [Unknown]
  - Weight decreased [Unknown]
  - Headache [Not Recovered/Not Resolved]
  - Crying [Unknown]

NARRATIVE: CASE EVENT DATE: 2020
